FAERS Safety Report 7988115-2 (Version None)
Quarter: 2011Q4

REPORT INFORMATION
  Report Type: 
  Country: None (occurrence: None)
  Receive Date: 20111216
  Receipt Date: 20111207
  Transmission Date: 20120403
  Serious: Yes (Other)
  Sender: FDA-Public Use
  Company Number: CN-ASTRAZENECA-2011SE74095

PATIENT
  Sex: Female

DRUGS (3)
  1. PROPOFOL [Suspect]
     Indication: ANAESTHESIA
     Dosage: 1-2 MG/KG
     Route: 042
  2. FENTANYL [Suspect]
     Indication: ANAESTHESIA
     Dosage: 0.05-0.1 MG
     Route: 042
  3. ATROPINE [Suspect]
     Indication: ANAESTHESIA
     Dosage: 0.3-0.5 MG
     Route: 042

REACTIONS (3)
  - ABORTION INDUCED COMPLICATED [None]
  - NAUSEA [None]
  - VOMITING [None]
